FAERS Safety Report 13024305 (Version 21)
Quarter: 2018Q1

REPORT INFORMATION
  Report Type: Report from Study
  Country: CA (occurrence: CA)
  Receive Date: 20161213
  Receipt Date: 20180313
  Transmission Date: 20180508
  Serious: Yes (Hospitalization)
  Sender: FDA-Public Use
  Company Number: CA-SA-2016SA043436

PATIENT
  Age: 30 Year
  Sex: Male

DRUGS (9)
  1. LEMTRADA [Suspect]
     Active Substance: ALEMTUZUMAB
     Indication: RELAPSING-REMITTING MULTIPLE SCLEROSIS
     Route: 041
     Dates: start: 20160307, end: 20160307
  2. LEMTRADA [Suspect]
     Active Substance: ALEMTUZUMAB
     Indication: RELAPSING-REMITTING MULTIPLE SCLEROSIS
     Route: 041
     Dates: start: 20160229, end: 20160302
  3. SOLU-MEDROL [Concomitant]
     Active Substance: METHYLPREDNISOLONE SODIUM SUCCINATE
     Indication: PREMEDICATION
     Route: 042
     Dates: end: 20160302
  4. SOLU-MEDROL [Concomitant]
     Active Substance: METHYLPREDNISOLONE SODIUM SUCCINATE
     Indication: PREMEDICATION
  5. REACTINE [Concomitant]
     Active Substance: CETIRIZINE HYDROCHLORIDE
     Indication: PREMEDICATION
     Route: 048
  6. VITAMIN D [Concomitant]
     Active Substance: CHOLECALCIFEROL
  7. LEMTRADA [Suspect]
     Active Substance: ALEMTUZUMAB
     Indication: RELAPSING-REMITTING MULTIPLE SCLEROSIS
     Route: 041
     Dates: start: 20160304, end: 20160304
  8. ACYCLOVIR. [Concomitant]
     Active Substance: ACYCLOVIR
     Indication: PREMEDICATION
     Route: 048
  9. RANITIDINE. [Concomitant]
     Active Substance: RANITIDINE
     Indication: PREMEDICATION
     Route: 048

REACTIONS (43)
  - Pigmentation disorder [Recovering/Resolving]
  - Acne [Not Recovered/Not Resolved]
  - Haematocrit decreased [Recovered/Resolved]
  - Urine abnormality [Recovered/Resolved]
  - Urine uric acid increased [Unknown]
  - Cough [Recovered/Resolved]
  - Oesophageal disorder [Recovered/Resolved]
  - Infusion site extravasation [Recovered/Resolved]
  - Platelet count decreased [Recovered/Resolved]
  - Increased upper airway secretion [Recovered/Resolved]
  - Urine analysis abnormal [Not Recovered/Not Resolved]
  - Band neutrophil count increased [Recovered/Resolved]
  - Neutrophil percentage increased [Recovered/Resolved]
  - Crystal urine present [Not Recovered/Not Resolved]
  - Fatigue [Recovered/Resolved]
  - Pruritus [Unknown]
  - Palpitations [Recovered/Resolved]
  - Epistaxis [Recovered/Resolved]
  - Contusion [Recovering/Resolving]
  - Haemoglobin decreased [Recovered/Resolved]
  - Bacterial test [Recovered/Resolved]
  - Insomnia [Recovered/Resolved]
  - Headache [Recovering/Resolving]
  - Rhinorrhoea [Recovering/Resolving]
  - Petechiae [Recovering/Resolving]
  - Red cell distribution width increased [Recovered/Resolved]
  - Monocyte percentage increased [Recovered/Resolved]
  - Lymphocyte percentage decreased [Not Recovered/Not Resolved]
  - Urticaria [Unknown]
  - Oral herpes [Recovered/Resolved]
  - Immune thrombocytopenic purpura [Recovering/Resolving]
  - Dysphonia [Recovered/Resolved]
  - Hot flush [Recovered/Resolved]
  - Intra-abdominal haematoma [Recovering/Resolving]
  - Band neutrophil percentage increased [Recovered/Resolved]
  - Infusion site pain [Recovered/Resolved]
  - Erythema [Not Recovered/Not Resolved]
  - Migraine [Recovered/Resolved]
  - Urine leukocyte esterase positive [Recovered/Resolved]
  - Nasal congestion [Recovered/Resolved]
  - Specific gravity urine increased [Recovered/Resolved]
  - Lymphocyte count decreased [Not Recovered/Not Resolved]
  - Rash erythematous [Recovering/Resolving]

NARRATIVE: CASE EVENT DATE: 2016
